FAERS Safety Report 5858122-4 (Version None)
Quarter: 2008Q3

REPORT INFORMATION
  Report Type: 
  Country: None (occurrence: None)
  Receive Date: 20080826
  Receipt Date: 20080815
  Transmission Date: 20090109
  Serious: Yes (Other)
  Sender: FDA-Public Use
  Company Number: US-ELI_LILLY_AND_COMPANY-US200807005366

PATIENT
  Age: 58 Year
  Sex: Female
  Weight: 48.98 kg

DRUGS (1)
  1. FORTEO [Suspect]
     Dosage: 20 UG, DAILY (1/D)
     Dates: start: 20070520, end: 20080811

REACTIONS (1)
  - ALVEOLITIS ALLERGIC [None]
